FAERS Safety Report 6596305-9 (Version None)
Quarter: 2010Q1

REPORT INFORMATION
  Report Type: 
  Country: None (occurrence: None)
  Receive Date: 20100219
  Receipt Date: 20100219
  Transmission Date: 20100710
  Serious: Yes (Other)
  Sender: FDA-Public Use
  Company Number: None

PATIENT
  Age: 60 Year
  Sex: Male

DRUGS (1)
  1. SERTRALINE HCL [Suspect]
     Indication: DEPRESSION
     Dosage: 100 MG EVERY DAY PO
     Route: 048
     Dates: start: 20090928, end: 20091001

REACTIONS (8)
  - AGGRESSION [None]
  - FEAR [None]
  - HEADACHE [None]
  - HOMICIDAL IDEATION [None]
  - NAUSEA [None]
  - PALPITATIONS [None]
  - PSYCHOTIC DISORDER [None]
  - VOMITING [None]
